FAERS Safety Report 19951789 (Version 1)
Quarter: 2021Q4

REPORT INFORMATION
  Report Type: Other
  Country: US (occurrence: US)
  Receive Date: 20211014
  Receipt Date: 20211014
  Transmission Date: 20220303
  Serious: No
  Sender: FDA-Public Use
  Company Number: US-NEUROCRINE BIOSCIENCES INC.-2021NBI05684

PATIENT

DRUGS (1)
  1. INGREZZA [Suspect]
     Active Substance: VALBENAZINE
     Indication: Nervous system disorder
     Dosage: 40 MILLIGRAM, QD
     Route: 048

REACTIONS (2)
  - Emphysema [Unknown]
  - Off label use [Unknown]
